FAERS Safety Report 13993459 (Version 7)
Quarter: 2022Q2

REPORT INFORMATION
  Report Type: Spontaneous
  Country: US (occurrence: US)
  Receive Date: 20170920
  Receipt Date: 20220630
  Transmission Date: 20220721
  Serious: Yes (Other)
  Sender: FDA-Public Use
  Company Number: US-PFIZER INC-2017400891

PATIENT
  Sex: Female

DRUGS (7)
  1. XALATAN [Suspect]
     Active Substance: LATANOPROST
     Indication: Glaucoma
     Dosage: UNK
  2. XALATAN [Suspect]
     Active Substance: LATANOPROST
     Dosage: UNK
  3. XALATAN [Suspect]
     Active Substance: LATANOPROST
     Dosage: UNK
  4. XALATAN [Suspect]
     Active Substance: LATANOPROST
     Dosage: UNK, 2X/DAY
  5. XALATAN [Suspect]
     Active Substance: LATANOPROST
     Dosage: 50 UG/ML, UNK
  6. XALATAN [Suspect]
     Active Substance: LATANOPROST
     Dosage: UNK
  7. XALATAN [Suspect]
     Active Substance: LATANOPROST
     Dosage: 125 UG, 1X/DAY (0.005% 125 MCG, ONCE A DAY)

REACTIONS (4)
  - Optic nerve injury [Unknown]
  - Drug ineffective [Unknown]
  - Product quality issue [Unknown]
  - Product storage error [Unknown]
